FAERS Safety Report 9468560 (Version 1)
Quarter: 2013Q3

REPORT INFORMATION
  Report Type: Spontaneous
  Country: US (occurrence: None)
  Receive Date: 20130816
  Receipt Date: 20130816
  Transmission Date: 20140515
  Serious: Yes (Other)
  Sender: FDA-Public Use
  Company Number: FK201303353

PATIENT
  Age: 46 Year
  Sex: Male

DRUGS (7)
  1. DOXORUBICIN (DOXORUBICIN) (DOXORUBICIN) [Suspect]
  2. METHOTREXATE (METHOTREXATE) [Suspect]
     Indication: DIFFUSE LARGE B-CELL LYMPHOMA
  3. CYCLOPHOSPHAMIDE (CYCLOPHOSPHAMIDE) [Suspect]
     Indication: DIFFUSE LARGE B-CELL LYMPHOMA
  4. PREDNISONE (PREDNISONE) [Suspect]
     Indication: DIFFUSE LARGE B-CELL LYMPHOMA
  5. RITUXIMAB (RITUXIMAB) [Suspect]
     Indication: DIFFUSE LARGE B-CELL LYMPHOMA
  6. VINCRISTINE (VINCRISTINE) (UNKNOWN) [Suspect]
     Indication: DIFFUSE LARGE B-CELL LYMPHOMA
  7. CLOZAPINE (CLOZAPINE) [Concomitant]

REACTIONS (4)
  - Agranulocytosis [None]
  - Platelet count decreased [None]
  - Red blood cell count decreased [None]
  - White blood cell count decreased [None]
